FAERS Safety Report 15034132 (Version 1)
Quarter: 2018Q2

REPORT INFORMATION
  Report Type: Spontaneous
  Country: US (occurrence: US)
  Receive Date: 20180620
  Receipt Date: 20180620
  Transmission Date: 20180711
  Serious: No
  Sender: FDA-Public Use
  Company Number: US-TEVA-822533ACC

PATIENT
  Age: 79 Year
  Sex: Female

DRUGS (1)
  1. LIDOCAINE. [Suspect]
     Active Substance: LIDOCAINE
     Indication: PAIN

REACTIONS (4)
  - Insomnia [Unknown]
  - Application site erythema [Unknown]
  - Application site reaction [Unknown]
  - Application site pain [Unknown]

NARRATIVE: CASE EVENT DATE: 20171030
